FAERS Safety Report 11167303 (Version 1)
Quarter: 2015Q2

REPORT INFORMATION
  Report Type: Spontaneous
  Country: US (occurrence: None)
  Receive Date: 20150515
  Receipt Date: 20150515
  Transmission Date: 20150821
  Serious: Yes (Other)
  Sender: FDA-Public Use
  Company Number: 2014006143

PATIENT

DRUGS (3)
  1. CIPRO [Concomitant]
     Active Substance: CIPROFLOXACIN HYDROCHLORIDE
  2. CIMZIA [Suspect]
     Active Substance: CERTOLIZUMAB PEGOL
     Indication: CROHN^S DISEASE
  3. FLAGYL (METRONIDAZOLE) [Concomitant]

REACTIONS (8)
  - Abdominal pain [None]
  - Infection [None]
  - Malaise [None]
  - Chills [None]
  - Pyrexia [None]
  - Dizziness [None]
  - Fatigue [None]
  - Drug ineffective [None]
